FAERS Safety Report 5159681-X (Version None)
Quarter: 2006Q4

REPORT INFORMATION
  Report Type: 
  Country: None (occurrence: None)
  Receive Date: 20061120
  Receipt Date: 20061106
  Transmission Date: 20070319
  Serious: Yes (Other)
  Sender: FDA-Public Use
  Company Number: 2006AP000478

PATIENT
  Age: 54 Year
  Sex: Female

DRUGS (9)
  1. TERAZOSIN HCL [Suspect]
     Indication: HYPERTENSION
     Dosage: 1 MG; HS; PO
     Route: 048
     Dates: start: 20060623, end: 20060626
  2. TERAZOSIN HCL [Suspect]
     Indication: HYPERTENSION
     Dosage: 1 MG; HS; PO
     Route: 048
     Dates: start: 20060913, end: 20060922
  3. NORVASC [Concomitant]
  4. GUANFACINE [Concomitant]
  5. AVAPRO [Concomitant]
  6. INSULIN ^NORDISK^ [Concomitant]
  7. SYNTHROID [Concomitant]
  8. MINOXIDIL [Concomitant]
  9. METOPROLOL SUCCINATE [Concomitant]

REACTIONS (10)
  - ABNORMAL DREAMS [None]
  - BLOOD PRESSURE SYSTOLIC INCREASED [None]
  - DRUG INEFFECTIVE [None]
  - IATROGENIC INJURY [None]
  - PROCEDURAL COMPLICATION [None]
  - RETINAL HAEMORRHAGE [None]
  - RETINAL SCAR [None]
  - TACHYCARDIA [None]
  - VISION BLURRED [None]
  - VITREOUS FLOATERS [None]
